FAERS Safety Report 4877569-6 (Version None)
Quarter: 2006Q1

REPORT INFORMATION
  Report Type: 
  Country: None (occurrence: None)
  Receive Date: 20060111
  Receipt Date: 20060102
  Transmission Date: 20060701
  Serious: Yes (Hospitalization, Disabling)
  Sender: FDA-Public Use
  Company Number: FR-GLAXOSMITHKLINE-B0404999A

PATIENT
  Age: 54 Year
  Sex: Male
  Weight: 78 kg

DRUGS (14)
  1. ZIAGEN [Suspect]
     Indication: HIV INFECTION
     Dosage: 300MG TWICE PER DAY
     Route: 048
     Dates: start: 20050615
  2. EPIVIR [Suspect]
     Indication: HIV INFECTION
     Dosage: 150MG PER DAY
     Route: 048
     Dates: start: 20050615
  3. NORVIR [Suspect]
     Indication: HIV INFECTION
     Route: 048
     Dates: start: 20050615
  4. REYATAZ [Suspect]
     Indication: HIV INFECTION
     Dosage: 150MG TWICE PER DAY
     Route: 048
     Dates: start: 20050615
  5. PREVISCAN [Suspect]
     Indication: HIV INFECTION
     Dosage: 20MG UNKNOWN
     Route: 048
     Dates: start: 20050615
  6. COVERSYL [Suspect]
     Indication: HIV INFECTION
     Dosage: 1UNIT PER DAY
     Route: 048
  7. HUMULIN N [Concomitant]
     Route: 065
  8. ZYLORIC [Concomitant]
     Indication: GOUT
     Dosage: 100MG UNKNOWN
     Route: 048
  9. KARDEGIC [Concomitant]
     Dosage: 160MG UNKNOWN
     Route: 048
  10. LASILIX [Concomitant]
     Route: 048
  11. OGAST [Concomitant]
  12. ZOLPIDEM TARTRATE [Concomitant]
  13. KAYEXALATE [Concomitant]
  14. DIALYSIS [Concomitant]
     Indication: RENAL FAILURE

REACTIONS (2)
  - DRY SKIN [None]
  - RETINAL HAEMORRHAGE [None]
